FAERS Safety Report 12204813 (Version 1)
Quarter: 2016Q1

REPORT INFORMATION
  Report Type: Spontaneous
  Country: US (occurrence: None)
  Receive Date: 20160322
  Receipt Date: 20160322
  Transmission Date: 20160526
  Serious: No
  Sender: FDA-Public Use
  Company Number: None

PATIENT
  Age: 75 Year
  Sex: Female
  Weight: 64.86 kg

DRUGS (4)
  1. CALCIUM D [Concomitant]
     Active Substance: CALCIUM\VITAMIN D
  2. MONTELUKAST [Concomitant]
     Active Substance: MONTELUKAST SODIUM
  3. DICYCLOMINE [Concomitant]
     Active Substance: DICYCLOMINE HYDROCHLORIDE
  4. PROAIR HFA [Suspect]
     Active Substance: ALBUTEROL SULFATE
     Indication: ASTHMA
     Dosage: 8.5 GM 2 INHALATIOINS ORALLY 2 PUFFS 4 TIMES A DAY BY MOUTH
     Route: 048
     Dates: start: 20151007, end: 20151007

REACTIONS (7)
  - Balance disorder [None]
  - Product substitution issue [None]
  - Dizziness [None]
  - Asthenia [None]
  - Tremor [None]
  - Nervousness [None]
  - Device issue [None]

NARRATIVE: CASE EVENT DATE: 20151007
